FAERS Safety Report 7800472-6 (Version None)
Quarter: 2011Q4

REPORT INFORMATION
  Report Type: 
  Country: None (occurrence: None)
  Receive Date: 20111006
  Receipt Date: 20111003
  Transmission Date: 20120403
  Serious: Yes (Life-Threatening, Other)
  Sender: FDA-Public Use
  Company Number: FR-PFIZER INC-2011234771

PATIENT
  Age: 72 Year
  Sex: Male

DRUGS (10)
  1. VANCOMYCIN [Concomitant]
     Indication: ANTIBIOTIC THERAPY
     Dosage: UNK
     Dates: start: 20110819, end: 20110828
  2. CRESTOR [Suspect]
     Dosage: UNK
     Route: 048
     Dates: start: 20110819, end: 20110911
  3. ALLOPURINOL [Suspect]
     Dosage: UNK
     Route: 048
     Dates: start: 20110819, end: 20110911
  4. ACETAMINOPHEN [Suspect]
     Dosage: UNK
     Dates: start: 20110808, end: 20110919
  5. AMLODIPINE BESYLATE [Suspect]
     Dosage: UNK
     Route: 048
     Dates: start: 20110808, end: 20110912
  6. NEXIUM [Suspect]
     Dosage: UNK
     Route: 048
     Dates: start: 20110819, end: 20110914
  7. TRAMADOL HCL [Suspect]
     Dosage: UNK
     Route: 048
     Dates: start: 20110819, end: 20110912
  8. ALLOPURINOL [Suspect]
     Dosage: UNK
     Route: 048
     Dates: start: 20070101, end: 20110806
  9. LEXOMIL [Concomitant]
     Dosage: UNK
     Dates: start: 20110819, end: 20110912
  10. OFLOXACIN [Concomitant]
     Indication: ANTIBIOTIC THERAPY
     Dosage: UNK
     Dates: start: 20110819, end: 20110828

REACTIONS (2)
  - STAPHYLOCOCCUS TEST POSITIVE [None]
  - DRUG RASH WITH EOSINOPHILIA AND SYSTEMIC SYMPTOMS [None]
